FAERS Safety Report 7824121-6 (Version None)
Quarter: 2011Q4

REPORT INFORMATION
  Report Type: 
  Country: None (occurrence: None)
  Receive Date: 20111019
  Receipt Date: 20111013
  Transmission Date: 20120403
  Serious: Yes (Other)
  Sender: FDA-Public Use
  Company Number: US-GENZYME-CLOF-1001859

PATIENT
  Sex: Male
  Weight: 70.9 kg

DRUGS (3)
  1. CYTARABINE [Suspect]
     Indication: ACUTE MYELOID LEUKAEMIA
     Dosage: 70 MG ONCE DAY 0
     Route: 037
     Dates: start: 20110926, end: 20110926
  2. CLOLAR [Suspect]
     Indication: ACUTE MYELOID LEUKAEMIA
     Dosage: 52 MG/M2 OVER 2 HOURS DAYS 1-5
     Route: 042
     Dates: start: 20110927, end: 20111001
  3. CYTARABINE [Suspect]
     Dosage: 1000 MG/M2 OVER 1 HOUR DAYS 1-5
     Route: 042
     Dates: start: 20110927, end: 20111001

REACTIONS (1)
  - GAMMA-GLUTAMYLTRANSFERASE INCREASED [None]
